FAERS Safety Report 6011303-1 (Version None)
Quarter: 2008Q4

REPORT INFORMATION
  Report Type: 
  Country: None (occurrence: None)
  Receive Date: 20081217
  Receipt Date: 20081217
  Transmission Date: 20090506
  Serious: No
  Sender: FDA-Public Use
  Company Number: None

PATIENT
  Age: 65 Year
  Sex: Male
  Weight: 118 kg

DRUGS (1)
  1. FOSINOPRIL SODIUM [Suspect]
     Indication: HYPERTENSION
     Dosage: 80 MG EVERY DAY PO
     Route: 048
     Dates: start: 19980826, end: 20081205

REACTIONS (2)
  - ANGIOEDEMA [None]
  - HYPOAESTHESIA [None]
